FAERS Safety Report 9846447 (Version 1)
Quarter: 2013Q4

REPORT INFORMATION
  Report Type: Spontaneous
  Country: US (occurrence: None)
  Receive Date: 20131223
  Receipt Date: 20131223
  Transmission Date: 20140711
  Serious: Yes (Other)
  Sender: FDA-Public Use
  Company Number: CABO-13003359

PATIENT
  Age: 58 Year
  Sex: Male
  Weight: 77.3 kg

DRUGS (5)
  1. COMETRIQ (CABOZANTINIB) CAPSULE [Suspect]
     Indication: RENAL CANCER
     Route: 048
     Dates: start: 20130918, end: 2013
  2. LIPITOR (ATORVASTATIN CALIUM) [Concomitant]
  3. CALCIUM WITH VITAMIN D (CALCIUM PHOSPHATE CALCIUM SODIUM LACTATE, ERGOCALCIFEROL) [Concomitant]
  4. VITAMIN [Concomitant]
  5. STOOL SOFTENER (DOCUSATE SODIUM) [Concomitant]

REACTIONS (5)
  - Anal injury [None]
  - Dysphonia [None]
  - Fatigue [None]
  - Constipation [None]
  - Off label use [None]
